FAERS Safety Report 9214760 (Version 2)
Quarter: 2013Q2

REPORT INFORMATION
  Report Type: Spontaneous
  Country: US (occurrence: US)
  Receive Date: 20120827
  Receipt Date: 20121123
  Transmission Date: 20140414
  Serious: Yes (Other)
  Sender: FDA-Public Use
  Company Number: 356081

PATIENT
  Age: 66 Year
  Sex: Male
  Weight: 81.6 kg

DRUGS (9)
  1. VICTOZA (LIRAGLUTIDE) SOLUTION FOR INJECTION, 6 MG/ML [Suspect]
     Indication: PRODUCT USED FOR UNKNOWN INDICATION
     Route: 058
     Dates: start: 201110, end: 20120605
  2. NORVASC (AMLODIPINE BESILATE) [Concomitant]
  3. FOSINOPRIL (FOSINOPRIL) [Concomitant]
  4. ZOCOR (SIMVASTATIN) [Concomitant]
  5. AMIODARONE (AMIODARONE) [Concomitant]
  6. ASA (ACETYLSALICYLIC ACID) [Concomitant]
  7. BENICAR HCT (HYDROCHLOROTHIAZIDE, OLMESARTAN MEDOXOMIL) (TABLET) (HYDROCHLOROTHIAZIDE, OLMESARTAN MEDOXOMIL) [Concomitant]
  8. ACTOS (PIOGLITAZONE HYDROCHLORIDE) [Concomitant]
  9. AMARYL (GLIMEPIRIDE) [Concomitant]

REACTIONS (1)
  - Pancreatitis [None]
